FAERS Safety Report 23409280 (Version 1)
Quarter: 2024Q1

REPORT INFORMATION
  Report Type: Spontaneous
  Country: US (occurrence: None)
  Receive Date: 20240115
  Receipt Date: 20240115
  Transmission Date: 20240409
  Serious: Yes (Hospitalization)
  Sender: FDA-Public Use
  Company Number: None

PATIENT
  Age: 76 Year
  Sex: Female
  Weight: 86.4 kg

DRUGS (1)
  1. WARFARIN [Suspect]
     Active Substance: WARFARIN
     Indication: Cerebrovascular accident
     Dates: start: 20211206

REACTIONS (3)
  - Gastrointestinal haemorrhage [None]
  - Acute kidney injury [None]
  - Anticoagulation drug level above therapeutic [None]

NARRATIVE: CASE EVENT DATE: 20240113
